FAERS Safety Report 14988987 (Version 1)
Quarter: 2018Q2

REPORT INFORMATION
  Report Type: Spontaneous
  Country: IT (occurrence: IT)
  Receive Date: 20180608
  Receipt Date: 20180608
  Transmission Date: 20180711
  Serious: Yes (Other)
  Sender: FDA-Public Use
  Company Number: IT-MYLANLABS-2018M1038298

PATIENT
  Age: 66 Year
  Sex: Female

DRUGS (2)
  1. CYTARABINE. [Suspect]
     Active Substance: CYTARABINE
     Indication: ACUTE MYELOID LEUKAEMIA
     Dosage: 160 MG, QD, THE PATIENT RECEIVED ONE CYCLE EVERY MONTH TILL JUNE-2012
     Route: 065
     Dates: start: 201203
  2. CYTARABINE. [Suspect]
     Active Substance: CYTARABINE
     Dosage: 80MG/DAY
     Route: 065

REACTIONS (2)
  - Drug reaction with eosinophilia and systemic symptoms [Recovered/Resolved]
  - Tooth abscess [Recovered/Resolved]

NARRATIVE: CASE EVENT DATE: 201206
